FAERS Safety Report 10067143 (Version 1)
Quarter: 2014Q2

REPORT INFORMATION
  Report Type: Spontaneous
  Country: US (occurrence: None)
  Receive Date: 20140408
  Receipt Date: 20140408
  Transmission Date: 20141212
  Serious: Yes (Death)
  Sender: FDA-Public Use
  Company Number: None

PATIENT
  Age: 67 Year
  Sex: Male

DRUGS (1)
  1. RECOMBINATE [Suspect]
     Indication: COAGULATION FACTOR VIII LEVEL ABNORMAL
     Dosage: 1500U, INJECTABLE, EVERY 12 HOURS
     Dates: start: 20120709

REACTIONS (1)
  - Death [None]
